FAERS Safety Report 24095760 (Version 1)
Quarter: 2024Q3

REPORT INFORMATION
  Report Type: Spontaneous
  Country: RU (occurrence: RU)
  Receive Date: 20240716
  Receipt Date: 20240716
  Transmission Date: 20241017
  Serious: Yes (Other)
  Sender: AMGEN
  Company Number: RU-AMGEN-RUSSP2024136478

PATIENT

DRUGS (12)
  1. BLINATUMOMAB [Suspect]
     Active Substance: BLINATUMOMAB
     Indication: B-cell type acute leukaemia
     Dosage: 15 MICROGRAM/SQ. METER, QD
     Route: 065
  2. DEXAMETHASONE [Concomitant]
     Active Substance: DEXAMETHASONE
     Dosage: 6 MILLIGRAM/SQ. METER, QD
     Route: 065
  3. DEXAMETHASONE [Concomitant]
     Active Substance: DEXAMETHASONE
     Dosage: UNK, QWK
     Route: 029
  4. PEG/L-ASPARAGINASE [Concomitant]
     Active Substance: PEGASPARGASE
     Dosage: AT A DOSE OF 1000 U/M2, ON DAY 3 OF INDUCTION
  5. VINCRISTINE [Concomitant]
     Active Substance: VINCRISTINE
     Dosage: 1.5 MILLIGRAM/SQ. METER, QWK
     Route: 042
  6. DAUNORUBICIN [Concomitant]
     Active Substance: DAUNORUBICIN
     Dosage: 45 MILLIGRAM/SQ. METER, SINGLE DOSE
  7. DAUNORUBICIN [Concomitant]
     Active Substance: DAUNORUBICIN
     Dosage: 45 MILLIGRAM/SQ. METER, DOUBLE DOSE
  8. METHOTREXATE [Concomitant]
     Active Substance: METHOTREXATE
     Dosage: UNK, QWK
     Route: 029
  9. METHOTREXATE [Concomitant]
     Active Substance: METHOTREXATE
     Dosage: 30 MILLIGRAM/SQ. METER, 2 YEARS
  10. CYTARABINE [Concomitant]
     Active Substance: CYTARABINE
     Dosage: UNK, QWK
     Route: 029
  11. ASPARAGINASE [Concomitant]
     Active Substance: ASPARAGINASE
     Dosage: 5000/10 000 U/M2
  12. MERCAPTOPURINE [Concomitant]
     Active Substance: MERCAPTOPURINE
     Dosage: 50 MILLIGRAM/SQ. METER, QD, 2 YEAR

REACTIONS (13)
  - Acute lymphocytic leukaemia recurrent [Unknown]
  - Thrombosis [Unknown]
  - Neurotoxicity [Unknown]
  - Cytokine release syndrome [Unknown]
  - Seizure [Unknown]
  - Headache [Unknown]
  - Hypoaesthesia [Unknown]
  - Nausea [Unknown]
  - Vomiting [Unknown]
  - Stomatitis [Unknown]
  - Hypertension [Unknown]
  - Tremor [Unknown]
  - Infection [Unknown]
